FAERS Safety Report 24571052 (Version 1)
Quarter: 2024Q4

REPORT INFORMATION
  Report Type: Spontaneous
  Country: US (occurrence: US)
  Receive Date: 20241101
  Receipt Date: 20241101
  Transmission Date: 20250115
  Serious: Yes (Death)
  Sender: TRAVERE THERAPEUTICS
  Company Number: US-TRAVERE-2024TVT01096

PATIENT
  Age: 74 Year
  Sex: Female

DRUGS (2)
  1. FILSPARI [Suspect]
     Active Substance: SPARSENTAN
     Indication: IgA nephropathy
     Route: 048
     Dates: start: 20240717
  2. FILSPARI [Suspect]
     Active Substance: SPARSENTAN
     Dosage: MAINTENANCE DOSE- 04-SEP-2024, 400 MG
     Route: 048
     Dates: start: 20240808

REACTIONS (1)
  - Death [Fatal]
